FAERS Safety Report 5599230-5 (Version None)
Quarter: 2008Q1

REPORT INFORMATION
  Report Type: 
  Country: None (occurrence: None)
  Receive Date: 20080117
  Receipt Date: 20080104
  Transmission Date: 20080703
  Serious: Yes (Other)
  Sender: FDA-Public Use
  Company Number: 2008000511

PATIENT
  Sex: Female

DRUGS (2)
  1. PURELL ORIGINAL (ETHYL ALCOHOL) [Suspect]
     Indication: ANTIBIOTIC PROPHYLAXIS
     Dosage: UNSPECIFIED, TOPICAL
     Route: 061
  2. CHEMOTHERAPY NOS (CHEMOTHERAPY NOS) [Concomitant]

REACTIONS (1)
  - HYPERSENSITIVITY [None]
